FAERS Safety Report 9124954 (Version 2)
Quarter: 2013Q2

REPORT INFORMATION
  Report Type: Spontaneous
  Country: JP (occurrence: JP)
  Receive Date: 20130227
  Receipt Date: 20130409
  Transmission Date: 20140414
  Serious: Yes (Life-Threatening, Hospitalization, Other)
  Sender: FDA-Public Use
  Company Number: JP-PFIZER INC-2013065511

PATIENT
  Age: 46 Year
  Sex: Female

DRUGS (3)
  1. ZITHROMAC SR [Suspect]
     Indication: PYREXIA
     Dosage: 2 G, 1X/DAY
     Route: 048
     Dates: start: 20121030, end: 20121030
  2. LOXONIN [Concomitant]
     Indication: PYREXIA
     Dosage: UNK
     Route: 048
     Dates: start: 20121030
  3. PL [Concomitant]
     Indication: PYREXIA
     Dosage: UNK
     Route: 048
     Dates: start: 20121030

REACTIONS (4)
  - Agranulocytosis [Recovered/Resolved]
  - Drug ineffective [Recovered/Resolved]
  - Pseudomonal sepsis [Unknown]
  - Gingival infection [Unknown]
